FAERS Safety Report 5642999-1 (Version None)
Quarter: 2008Q1

REPORT INFORMATION
  Report Type: 
  Country: None (occurrence: None)
  Receive Date: 20080228
  Receipt Date: 20080225
  Transmission Date: 20080703
  Serious: Yes (Other)
  Sender: FDA-Public Use
  Company Number: B0509757A

PATIENT
  Age: 22 Year
  Sex: Female
  Weight: 69.9 kg

DRUGS (7)
  1. LAPATINIB [Suspect]
     Indication: BREAST CANCER
     Dates: start: 20080111
  2. PACLITAXEL [Suspect]
     Indication: BREAST CANCER
     Dates: start: 20080111
  3. TRASTUZUMAB [Suspect]
     Indication: BREAST CANCER
     Dates: start: 20080111
  4. MYCOSTATIN [Concomitant]
  5. CORSODYL MOUTHWASH [Concomitant]
  6. DEXAMETHASONE TAB [Concomitant]
  7. IMODIUM [Concomitant]

REACTIONS (2)
  - ABDOMINAL PAIN UPPER [None]
  - ASPARTATE AMINOTRANSFERASE INCREASED [None]
